FAERS Safety Report 6197487-3 (Version None)
Quarter: 2009Q2

REPORT INFORMATION
  Report Type: 
  Country: None (occurrence: None)
  Receive Date: 20090521
  Receipt Date: 20090519
  Transmission Date: 20091009
  Serious: Yes (Death)
  Sender: FDA-Public Use
  Company Number: US-BAYER-200921301GPV

PATIENT
  Age: 70 Year
  Sex: Male
  Weight: 69 kg

DRUGS (2)
  1. SORAFENIB [Suspect]
     Indication: METASTATIC RENAL CELL CARCINOMA
     Dosage: TOTAL DAILY DOSE: 800 MG
     Route: 048
     Dates: start: 20090505, end: 20090516
  2. ENOXAPARIN SODIUM [Concomitant]
     Indication: PULMONARY EMBOLISM
     Route: 065
     Dates: start: 20090428

REACTIONS (5)
  - CARDIAC ARREST [None]
  - DYSPNOEA [None]
  - FALL [None]
  - HAEMORRHAGE INTRACRANIAL [None]
  - RESPIRATORY ARREST [None]
